FAERS Safety Report 6447873-9 (Version None)
Quarter: 2009Q4

REPORT INFORMATION
  Report Type: 
  Country: None (occurrence: None)
  Receive Date: 20091120
  Receipt Date: 20091110
  Transmission Date: 20100525
  Serious: Yes (Other)
  Sender: FDA-Public Use
  Company Number: US-JNJFOC-20091103141

PATIENT
  Sex: Male

DRUGS (6)
  1. REMICADE [Suspect]
     Indication: CROHN'S DISEASE
     Route: 042
  2. M.V.I. [Concomitant]
  3. METOPROLOL TARTRATE [Concomitant]
  4. LIPITOR [Concomitant]
  5. ASPIRIN [Concomitant]
     Route: 048
  6. ZEGERID [Concomitant]

REACTIONS (1)
  - THYROID DISORDER [None]
